FAERS Safety Report 4788076-3 (Version None)
Quarter: 2005Q4

REPORT INFORMATION
  Report Type: 
  Country: None (occurrence: None)
  Receive Date: 20051003
  Receipt Date: 20050913
  Transmission Date: 20060501
  Serious: Yes (Other)
  Sender: FDA-Public Use
  Company Number: CA-050908733

PATIENT
  Age: 17 Year
  Sex: Male
  Weight: 91 kg

DRUGS (1)
  1. STRATTERA [Suspect]
     Indication: ATTENTION DEFICIT/HYPERACTIVITY DISORDER
     Dosage: 60 MG
     Dates: start: 20050615

REACTIONS (5)
  - AGGRESSION [None]
  - AGITATION [None]
  - ALCOHOL USE [None]
  - IMPULSIVE BEHAVIOUR [None]
  - SUICIDAL IDEATION [None]
